FAERS Safety Report 8254416-6 (Version None)
Quarter: 2012Q2

REPORT INFORMATION
  Report Type: 
  Country: None (occurrence: None)
  Receive Date: 20120403
  Receipt Date: 20120319
  Transmission Date: 20120825
  Serious: Yes (Death, Hospitalization)
  Sender: FDA-Public Use
  Company Number: FR-RANBAXY-2012RR-54553

PATIENT
  Sex: Female

DRUGS (8)
  1. METFORMIN HYDROCHLORIDE [Suspect]
     Indication: PRODUCT USED FOR UNKNOWN INDICATION
     Dosage: 50MG/1000MG, BID
     Route: 048
     Dates: end: 20110226
  2. FENOFIBRATE [Suspect]
     Indication: PRODUCT USED FOR UNKNOWN INDICATION
     Dosage: 200 MG, QD
     Route: 048
     Dates: end: 20110226
  3. CANDESARTAN CILEXETIL AND HYDROCHLOROTHIAZIDE [Suspect]
     Indication: PRODUCT USED FOR UNKNOWN INDICATION
     Dosage: 16MG/12.5MG/ DAY
     Route: 048
     Dates: end: 20110226
  4. ADRENALIN IN OIL INJ [Concomitant]
     Indication: CARDIAC ARREST
     Dosage: 5 MG, UNK
     Route: 065
  5. LODOX [Suspect]
     Indication: PRODUCT USED FOR UNKNOWN INDICATION
     Dosage: 10MG/ 6.25MG/DAY
     Route: 048
     Dates: end: 20110226
  6. CITRAFLEET [Suspect]
     Indication: BOWEL PREPARATION
     Dosage: 1 DF/DAY
     Route: 048
     Dates: start: 20110222, end: 20110323
  7. ZOLPIDEM TARTRATE [Suspect]
     Indication: PRODUCT USED FOR UNKNOWN INDICATION
     Dosage: 10 MG, QD
     Route: 048
     Dates: start: 20110202, end: 20110226
  8. OMEPRAZOLE [Suspect]
     Indication: PRODUCT USED FOR UNKNOWN INDICATION
     Dosage: 20 MG/DAY
     Route: 048
     Dates: start: 20110202, end: 20110226

REACTIONS (1)
  - RENAL FAILURE ACUTE [None]
